FAERS Safety Report 7326317-9 (Version None)
Quarter: 2011Q1

REPORT INFORMATION
  Report Type: 
  Country: None (occurrence: None)
  Receive Date: 20110302
  Receipt Date: 20110222
  Transmission Date: 20110831
  Serious: Yes (Other)
  Sender: FDA-Public Use
  Company Number: A0916165A

PATIENT
  Age: 69 Year
  Sex: Female

DRUGS (2)
  1. LETROZOLE [Suspect]
     Dosage: 2.5MGD PER DAY
     Dates: start: 20100301
  2. TYKERB [Suspect]
     Indication: BREAST CANCER
     Dosage: 1250MGD PER DAY
     Route: 065
     Dates: start: 20100301, end: 20100701

REACTIONS (8)
  - VAGINAL INFLAMMATION [None]
  - RASH [None]
  - SKIN ULCER [None]
  - MUCOSAL INFLAMMATION [None]
  - CONJUNCTIVAL HAEMORRHAGE [None]
  - PALMAR-PLANTAR ERYTHRODYSAESTHESIA SYNDROME [None]
  - THROMBOCYTOPENIA [None]
  - SKIN HAEMORRHAGE [None]
